FAERS Safety Report 14926432 (Version 1)
Quarter: 2018Q2

REPORT INFORMATION
  Report Type: Spontaneous
  Country: FR (occurrence: FR)
  Receive Date: 20180523
  Receipt Date: 20180523
  Transmission Date: 20180711
  Serious: Yes (Other)
  Sender: FDA-Public Use
  Company Number: FR-TEVA-2018-FR-894453

PATIENT
  Age: 25 Year
  Sex: Male
  Weight: 70 kg

DRUGS (2)
  1. FLOXYFRAL [Interacting]
     Active Substance: FLUVOXAMINE
     Indication: SCHIZOPHRENIA
     Dosage: 50 MILLIGRAM DAILY;
     Route: 048
     Dates: start: 20180116, end: 20180130
  2. CLOZAPINE. [Suspect]
     Active Substance: CLOZAPINE
     Indication: SCHIZOPHRENIA
     Dosage: 525 MILLIGRAM DAILY;
     Route: 048
     Dates: start: 2017

REACTIONS (5)
  - Muscle spasms [Recovered/Resolved]
  - Hypertonia [Recovered/Resolved]
  - Orthostatic hypotension [Recovered/Resolved]
  - Drug interaction [Unknown]
  - Myoclonus [Recovered/Resolved]

NARRATIVE: CASE EVENT DATE: 20180130
